FAERS Safety Report 8147715-X (Version None)
Quarter: 2012Q1

REPORT INFORMATION
  Report Type: 
  Country: None (occurrence: None)
  Receive Date: 20120218
  Receipt Date: 20110309
  Transmission Date: 20120608
  Serious: No
  Sender: FDA-Public Use
  Company Number: US-ALLERGAN-1103335US

PATIENT
  Sex: Male

DRUGS (1)
  1. BOTULINUM TOXIN TYPE A [Suspect]
     Indication: BLEPHAROSPASM
     Dosage: 100 UNITS, SINGLE
     Dates: start: 20110304, end: 20110304

REACTIONS (1)
  - EYE SWELLING [None]
